FAERS Safety Report 23849036 (Version 2)
Quarter: 2024Q4

REPORT INFORMATION
  Report Type: Spontaneous
  Country: US (occurrence: US)
  Receive Date: 20240513
  Receipt Date: 20241020
  Transmission Date: 20250114
  Serious: No
  Sender: SANOFI AVENTIS
  Company Number: US-SA-SAC20240506000605

PATIENT
  Age: 49 Year
  Sex: Male

DRUGS (19)
  1. DUPIXENT [Suspect]
     Active Substance: DUPILUMAB
     Indication: Dermatitis atopic
     Dosage: 300 MG, QOW
     Route: 058
     Dates: start: 20240205
  2. DUPIXENT [Suspect]
     Active Substance: DUPILUMAB
     Indication: Eczema
  3. DUPIXENT [Suspect]
     Active Substance: DUPILUMAB
     Indication: Asthma
  4. ADVAIR HFA [Concomitant]
     Active Substance: FLUTICASONE PROPIONATE\SALMETEROL XINAFOATE
  5. ALBUTEROL SULFATE [Concomitant]
     Active Substance: ALBUTEROL SULFATE
  6. ATORVASTATIN [Concomitant]
     Active Substance: ATORVASTATIN
  7. CARVEDILOL [Concomitant]
     Active Substance: CARVEDILOL
  8. CLOTRIMAZOLE [Concomitant]
     Active Substance: CLOTRIMAZOLE
  9. GAVILYTE - C [Concomitant]
     Active Substance: POLYETHYLENE GLYCOL 3350\POTASSIUM CHLORIDE\SODIUM BICARBONATE\SODIUM CHLORIDE\SODIUM SULFATE
  10. LOSARTAN POTASSIUM [Concomitant]
     Active Substance: LOSARTAN POTASSIUM
  11. MONTELUKAST [Concomitant]
     Active Substance: MONTELUKAST
  12. SIMVASTATIN [Concomitant]
     Active Substance: SIMVASTATIN
  13. ASPIRIN [Concomitant]
     Active Substance: ASPIRIN
  14. CARVEDILOL [Concomitant]
     Active Substance: CARVEDILOL
  15. FLUTICASONE PROPIONATE\SALMETEROL XINAFOATE [Concomitant]
     Active Substance: FLUTICASONE PROPIONATE\SALMETEROL XINAFOATE
  16. HYDROXYZINE HYDROCHLORIDE [Concomitant]
     Active Substance: HYDROXYZINE HYDROCHLORIDE
  17. SIMVASTATIN [Concomitant]
     Active Substance: SIMVASTATIN
  18. TRIAMCINOLONE [Concomitant]
     Active Substance: TRIAMCINOLONE
  19. HYDROCHLOROTHIAZIDE\TRIAMTERENE [Concomitant]
     Active Substance: HYDROCHLOROTHIAZIDE\TRIAMTERENE

REACTIONS (4)
  - Asthma [Unknown]
  - Impaired quality of life [Unknown]
  - Sleep disorder due to a general medical condition [Unknown]
  - Eczema [Unknown]

NARRATIVE: CASE EVENT DATE: 20240101
